FAERS Safety Report 22194001 (Version 2)
Quarter: 2023Q2

REPORT INFORMATION
  Report Type: Spontaneous
  Country: CZ (occurrence: CZ)
  Receive Date: 20230411
  Receipt Date: 20230504
  Transmission Date: 20230721
  Serious: Yes (Hospitalization, Other)
  Sender: FDA-Public Use
  Company Number: CZ-MLMSERVICE-20230330-4199132-1

PATIENT
  Age: 65 Year
  Sex: Female

DRUGS (17)
  1. ISOFLURANE [Suspect]
     Active Substance: ISOFLURANE
     Indication: General anaesthesia
     Dosage: 0.8-1.2 VOL % WITHOUT THE USE OF NITROUS OXIDE
  2. MIDAZOLAM [Suspect]
     Active Substance: MIDAZOLAM
     Indication: Anaesthetic premedication
     Dosage: 3 MG
     Route: 030
  3. PROPOFOL [Suspect]
     Active Substance: PROPOFOL
     Indication: General anaesthesia
     Dosage: 150 MG
     Route: 042
  4. SUFENTANIL [Suspect]
     Active Substance: SUFENTANIL
     Indication: General anaesthesia
     Dosage: 20 PG/HR ADMINISTRATION STOPPED 30 MIN BEFORE THE END OF SURGERY
     Route: 042
  5. SUFENTANIL [Suspect]
     Active Substance: SUFENTANIL
     Indication: Supplementation therapy
  6. ATROPINE [Suspect]
     Active Substance: ATROPINE
     Indication: Anaesthetic premedication
     Dosage: 0.5 MG
     Route: 030
  7. ATROPINE [Suspect]
     Active Substance: ATROPINE
     Indication: Abdominal pain
     Dosage: 0.5 MG
     Route: 042
  8. ATROPINE [Suspect]
     Active Substance: ATROPINE
     Indication: Vomiting
  9. ALPRAZOLAM [Suspect]
     Active Substance: ALPRAZOLAM
     Indication: Sleep disorder
     Route: 065
  10. ROCURONIUM [Suspect]
     Active Substance: ROCURONIUM BROMIDE
     Indication: General anaesthesia
     Dosage: 55 MG IN TOTAL, THE LAST DOSE OF 10 MG WAS ADMINISTERED 35 MIN BEFORE THE END OF THE SURGERY
     Route: 042
  11. ROCURONIUM [Suspect]
     Active Substance: ROCURONIUM BROMIDE
     Dosage: 40 MG
     Route: 042
  12. NEBIVOLOL [Concomitant]
     Active Substance: NEBIVOLOL
     Indication: Pain
     Route: 065
  13. OMEPRAZOLE [Concomitant]
     Active Substance: OMEPRAZOLE
     Indication: Pain
     Route: 065
  14. ESCITALOPRAM [Concomitant]
     Active Substance: ESCITALOPRAM OXALATE
     Indication: Pain
     Route: 065
  15. METAMIZOL [Concomitant]
     Active Substance: METAMIZOLE SODIUM
     Indication: Pain
     Route: 065
  16. MESALAMINE [Concomitant]
     Active Substance: MESALAMINE
     Indication: Pain
     Route: 065
  17. SUGAMMADEX [Concomitant]
     Active Substance: SUGAMMADEX
     Indication: Neuromuscular blockade reversal
     Dosage: 200 MG
     Route: 042

REACTIONS (8)
  - Anticholinergic syndrome [Recovered/Resolved]
  - Somnolence [Recovered/Resolved]
  - Stupor [Recovered/Resolved]
  - Apraxia [Recovered/Resolved]
  - Pupillary disorder [Recovered/Resolved]
  - Mydriasis [Recovered/Resolved]
  - Paresis [Recovered/Resolved]
  - Cerebrovascular accident [Recovered/Resolved]
